FAERS Safety Report 17800541 (Version 1)
Quarter: 2020Q2

REPORT INFORMATION
  Report Type: Spontaneous
  Country: US (occurrence: US)
  Receive Date: 20200518
  Receipt Date: 20200518
  Transmission Date: 20200714
  Serious: Yes (Hospitalization, Other)
  Sender: FDA-Public Use
  Company Number: US-TAKEDA-2020TUS022623

PATIENT
  Sex: Female

DRUGS (1)
  1. NINLARO [Suspect]
     Active Substance: IXAZOMIB CITRATE
     Indication: PLASMA CELL MYELOMA
     Dosage: 4 MILLIGRAM
     Route: 065

REACTIONS (5)
  - Influenza [Unknown]
  - Drug ineffective [Unknown]
  - Plasma cell myeloma recurrent [Unknown]
  - Product administration error [Unknown]
  - Pneumonia influenzal [Unknown]

NARRATIVE: CASE EVENT DATE: 201911
